FAERS Safety Report 4521701-0 (Version None)
Quarter: 2004Q4

REPORT INFORMATION
  Report Type: 
  Country: None (occurrence: None)
  Receive Date: 20041208
  Receipt Date: 20041208
  Transmission Date: 20050328
  Serious: No
  Sender: FDA-Public Use
  Company Number: None

PATIENT
  Age: 46 Year
  Sex: Male

DRUGS (4)
  1. LINEZOLID 600 MG Q 12 H IV + PO DIFERENT TIMES [Suspect]
     Indication: CELLULITIS
     Dosage: 600 MG IV Q 12
     Route: 042
     Dates: start: 20040716, end: 20040801
  2. LINEZOLID 600 MG Q 12 H IV + PO DIFERENT TIMES [Suspect]
     Indication: STAPHYLOCOCCAL INFECTION
     Dosage: 600 MG IV Q 12
     Route: 042
     Dates: start: 20040716, end: 20040801
  3. LINEZOLID 600 MG Q 12 H IV + PO DIFERENT TIMES [Suspect]
     Indication: URINARY TRACT INFECTION
     Dosage: 600 MG IV Q 12
     Route: 042
     Dates: start: 20040716, end: 20040801
  4. LINEZOLID 600 MG Q 12 H IV + PO DIFERENT THIS [Suspect]
     Dosage: CHANGED TO PO Q 12 AT ONE POINT
     Route: 048
     Dates: start: 20040803, end: 20040805

REACTIONS (3)
  - BLOOD LACTIC ACID INCREASED [None]
  - HEPATIC FAILURE [None]
  - RENAL FAILURE [None]
